FAERS Safety Report 5018995-4 (Version None)
Quarter: 2006Q2

REPORT INFORMATION
  Report Type: 
  Country: None (occurrence: None)
  Receive Date: 20060606
  Receipt Date: 20060601
  Transmission Date: 20061013
  Serious: Yes (Other)
  Sender: FDA-Public Use
  Company Number: US-GLAXOSMITHKLINE-A0607841A

PATIENT
  Age: 16 Year
  Sex: Female

DRUGS (1)
  1. PAXIL [Suspect]
     Indication: DEPRESSION
     Dosage: 30MG PER DAY
     Route: 048

REACTIONS (8)
  - ABNORMAL BEHAVIOUR [None]
  - ADVERSE EVENT [None]
  - DEMENTIA [None]
  - DEPRESSION [None]
  - FEELING ABNORMAL [None]
  - LISTLESS [None]
  - SOMNOLENCE [None]
  - SUICIDAL IDEATION [None]
